FAERS Safety Report 4537080-9 (Version None)
Quarter: 2004Q4

REPORT INFORMATION
  Report Type: 
  Country: None (occurrence: None)
  Receive Date: 20041223
  Receipt Date: 20041223
  Transmission Date: 20050328
  Serious: Yes (Other)
  Sender: FDA-Public Use
  Company Number: BR-GLAXOSMITHKLINE-A0538431A

PATIENT
  Age: 33 Year
  Sex: Male
  Weight: 74 kg

DRUGS (2)
  1. ZYBAN [Suspect]
     Indication: DEPRESSION
     Route: 048
     Dates: start: 20040810, end: 20040930
  2. NEFAZODONE [Concomitant]
     Dates: start: 20040202

REACTIONS (1)
  - VISUAL ACUITY REDUCED [None]
